FAERS Safety Report 5694550-8 (Version None)
Quarter: 2008Q2

REPORT INFORMATION
  Report Type: 
  Country: None (occurrence: None)
  Receive Date: 20080404
  Receipt Date: 20080401
  Transmission Date: 20081010
  Serious: Yes (Other)
  Sender: FDA-Public Use
  Company Number: EG-AVENTIS-200812830GDDC

PATIENT
  Age: 14 Year
  Sex: Female

DRUGS (2)
  1. LANTUS [Suspect]
     Route: 058
  2. ACTRAPID [Concomitant]
     Indication: DIABETES MELLITUS

REACTIONS (1)
  - WEIGHT INCREASED [None]
